FAERS Safety Report 18467987 (Version 1)
Quarter: 2020Q4

REPORT INFORMATION
  Report Type: Spontaneous
  Country: US (occurrence: US)
  Receive Date: 20201104
  Receipt Date: 20201104
  Transmission Date: 20210114
  Serious: No
  Sender: FDA-Public Use
  Company Number: None

PATIENT
  Age: 73 Year
  Sex: Male

DRUGS (1)
  1. TOBRAMYCIN (56AMPS/28DAY) [Suspect]
     Active Substance: TOBRAMYCIN
     Indication: PSEUDOMONAS INFECTION
     Route: 055
     Dates: start: 20201031

REACTIONS (1)
  - Epistaxis [None]

NARRATIVE: CASE EVENT DATE: 20201102
